FAERS Safety Report 5267764-9 (Version None)
Quarter: 2007Q1

REPORT INFORMATION
  Report Type: 
  Country: None (occurrence: None)
  Receive Date: 20070316
  Receipt Date: 20070305
  Transmission Date: 20070707
  Serious: Yes (Hospitalization)
  Sender: FDA-Public Use
  Company Number: FR-PFIZER INC-2007017284

PATIENT
  Age: 80 Year
  Sex: Male

DRUGS (6)
  1. NEURONTIN [Suspect]
     Indication: EPILEPSY
     Route: 048
     Dates: start: 20061205, end: 20070105
  2. CORDARONE [Concomitant]
     Route: 048
  3. PREVISCAN [Concomitant]
     Route: 048
  4. DALACIN [Concomitant]
     Route: 048
  5. CALCIPARINE [Concomitant]
     Route: 058
  6. OFLOCET [Concomitant]
     Route: 048

REACTIONS (1)
  - VASCULAR PURPURA [None]
